FAERS Safety Report 9475090 (Version 1)
Quarter: 2013Q3

REPORT INFORMATION
  Report Type: Report from Study
  Country: CN (occurrence: CN)
  Receive Date: 20130824
  Receipt Date: 20130824
  Transmission Date: 20140515
  Serious: Yes (Other)
  Sender: FDA-Public Use
  Company Number: CN-ROCHE-1264375

PATIENT
  Sex: 0

DRUGS (1)
  1. CEFTRIAXONE [Suspect]
     Indication: PRODUCT USED FOR UNKNOWN INDICATION
     Route: 065

REACTIONS (1)
  - Drug-induced liver injury [Unknown]
